FAERS Safety Report 15339629 (Version 2)
Quarter: 2019Q3

REPORT INFORMATION
  Report Type: Spontaneous
  Country: US (occurrence: US)
  Receive Date: 20180831
  Receipt Date: 20190815
  Transmission Date: 20191004
  Serious: Yes (Other)
  Sender: FDA-Public Use
  Company Number: US-PFIZER INC-2018341997

PATIENT
  Sex: Male

DRUGS (2)
  1. NARDIL [Suspect]
     Active Substance: PHENELZINE SULFATE
     Indication: DEPRESSION
     Dosage: UNK
     Dates: start: 1980
  2. NARDIL [Suspect]
     Active Substance: PHENELZINE SULFATE
     Indication: ANXIETY

REACTIONS (7)
  - Drug dependence [Unknown]
  - Contraindicated product administered [Unknown]
  - Bladder spasm [Unknown]
  - Escherichia infection [Unknown]
  - Bladder diverticulum [Unknown]
  - Cardiac failure [Unknown]
  - Prostatomegaly [Unknown]
